FAERS Safety Report 8974931 (Version 5)
Quarter: 2014Q1

REPORT INFORMATION
  Report Type: Report from Study
  Country: CN (occurrence: CN)
  Receive Date: 20121220
  Receipt Date: 20140326
  Transmission Date: 20141002
  Serious: Yes (Life-Threatening, Hospitalization, Other)
  Sender: FDA-Public Use
  Company Number: CN-AMGEN-CHNCT2012080939

PATIENT
  Age: 55 Year
  Sex: Male
  Weight: 54 kg

DRUGS (13)
  1. PANITUMUMAB [Suspect]
     Indication: COLORECTAL CANCER METASTATIC
     Dosage: 318 MG, UNK
     Route: 065
     Dates: start: 20121030, end: 20121113
  2. LEVOFLOXACIN [Concomitant]
     Indication: INFECTION
     Dosage: UNK
     Route: 042
     Dates: start: 20121031, end: 20121108
  3. OMEPRAZOLE SODIUM [Concomitant]
     Indication: GASTROINTESTINAL DISORDER
     Dosage: UNK
     Route: 042
     Dates: start: 20121031, end: 20121120
  4. MAGNESIUM ISOGLYCYRRHIZINATE [Concomitant]
     Indication: LIVER DISORDER
     Dosage: UNK
     Route: 042
     Dates: start: 20121031, end: 20121108
  5. AMINO ACIDS NOS W/POLYPEPTIDE [Concomitant]
     Dosage: UNK
     Route: 042
     Dates: start: 20121031, end: 20121108
  6. CIMETIDINE [Concomitant]
     Indication: GASTROINTESTINAL DISORDER
     Dosage: UNK
     Route: 042
     Dates: start: 20121114, end: 20121120
  7. HERBAL EXTRACT NOS [Concomitant]
     Indication: JAUNDICE
     Dosage: UNK
     Route: 048
     Dates: start: 20121205, end: 20121214
  8. HYDROCHLOROTHIAZIDE [Concomitant]
     Indication: OEDEMA
     Dosage: UNK
     Route: 048
     Dates: start: 20121210, end: 20121213
  9. AMINO ACID [Concomitant]
     Indication: NUTRITIONAL SUPPLEMENTATION
     Dosage: UNK
     Route: 042
     Dates: start: 20121128, end: 20121214
  10. SPIRONOLACTONE [Concomitant]
     Indication: OEDEMA
     Dosage: UNK
     Route: 048
     Dates: start: 20121210, end: 20121214
  11. OXYCODONE HYDROCHLORIDE [Concomitant]
     Indication: PAIN
     Dosage: UNK
     Route: 048
     Dates: start: 20121127, end: 20121127
  12. MORPHINE [Concomitant]
     Indication: PAIN
     Dosage: UNK
     Route: 048
     Dates: start: 20121129, end: 20121209
  13. ALBUMIN [Concomitant]
     Indication: BLOOD ALBUMIN ABNORMAL
     Dosage: UNK
     Route: 042
     Dates: start: 20121205, end: 20121219

REACTIONS (3)
  - Jaundice hepatocellular [Recovered/Resolved]
  - Platelet count decreased [Recovered/Resolved]
  - Disseminated intravascular coagulation [Recovered/Resolved]
